FAERS Safety Report 10048444 (Version 2)
Quarter: 2014Q4

REPORT INFORMATION
  Report Type: Spontaneous
  Country: US (occurrence: None)
  Receive Date: 20140327
  Receipt Date: 20141027
  Transmission Date: 20150528
  Serious: Yes (Other)
  Sender: FDA-Public Use
  Company Number: 2014-US-003172

PATIENT
  Age: 44 Year
  Sex: Female
  Weight: 56.7 kg

DRUGS (6)
  1. ERRIN (NORETHISTERONE) [Concomitant]
  2. XYREM [Suspect]
     Active Substance: SODIUM OXYBATE
     Indication: NARCOLEPSY
     Route: 048
     Dates: start: 200802
  3. SERTRALINE [Concomitant]
     Active Substance: SERTRALINE HYDROCHLORIDE
  4. VITAMIN D (COLECALCIFEROL) [Concomitant]
  5. ZOCOR [Concomitant]
     Active Substance: SIMVASTATIN
  6. ADDERALL (AMPHETAMINE AND DEXTROAMPHETAMINE [Concomitant]

REACTIONS (13)
  - Sinusitis [None]
  - Immune system disorder [None]
  - Contusion [None]
  - Feeling abnormal [None]
  - Sleep attacks [None]
  - Suture insertion [None]
  - Upper respiratory tract infection [None]
  - Somnolence [None]
  - Insomnia [None]
  - Head injury [None]
  - Fall [None]
  - Stress [None]
  - Fatigue [None]

NARRATIVE: CASE EVENT DATE: 2012
